FAERS Safety Report 7486337-0 (Version None)
Quarter: 2011Q2

REPORT INFORMATION
  Report Type: 
  Country: None (occurrence: None)
  Receive Date: 20110517
  Receipt Date: 20110506
  Transmission Date: 20111010
  Serious: Yes (Other)
  Sender: FDA-Public Use
  Company Number: PHHY2011IT38741

PATIENT
  Sex: Female

DRUGS (2)
  1. CARBOPLATIN [Suspect]
  2. PACLITAXEL [Suspect]

REACTIONS (3)
  - SYNCOPE [None]
  - ASTHENIA [None]
  - TRAUMATIC BRAIN INJURY [None]
